FAERS Safety Report 10300649 (Version 2)
Quarter: 2014Q3

REPORT INFORMATION
  Report Type: Spontaneous
  Country: US (occurrence: US)
  Receive Date: 20140714
  Receipt Date: 20140815
  Transmission Date: 20150326
  Serious: No
  Sender: FDA-Public Use
  Company Number: US-B.I. PHARMACEUTICALS,INC./RIDGEFIELD-2014-BI-30539BP

PATIENT
  Age: 58 Year
  Sex: Female
  Weight: 67 kg

DRUGS (7)
  1. IPRATROPIUM [Concomitant]
     Active Substance: IPRATROPIUM
     Indication: CHRONIC OBSTRUCTIVE PULMONARY DISEASE
     Route: 055
     Dates: start: 2013
  2. GABAPENTIN. [Concomitant]
     Active Substance: GABAPENTIN
     Indication: GASTROOESOPHAGEAL REFLUX DISEASE
     Dosage: 300 MG
     Route: 048
  3. ASPIRIN. [Concomitant]
     Active Substance: ASPIRIN
     Indication: MYOCARDIAL STRAIN
     Dosage: 81 MG
     Route: 048
     Dates: start: 201405
  4. SERTRALINE [Concomitant]
     Active Substance: SERTRALINE HYDROCHLORIDE
     Indication: MUSCLE DISORDER
     Dosage: 100 MG
     Route: 048
  5. COMBIVENT [Suspect]
     Active Substance: ALBUTEROL SULFATE\IPRATROPIUM BROMIDE
     Indication: CHRONIC OBSTRUCTIVE PULMONARY DISEASE
     Dosage: DOSE PER APPLICATION: 20 MCG / 100 MCG; DAILY DOSE: 160 MCG/800 MCG
     Route: 055
     Dates: start: 20140616
  6. ATORVASTATIN [Concomitant]
     Active Substance: ATORVASTATIN
     Indication: MUSCLE DISORDER
     Dosage: 10 MG
     Route: 048
  7. MEOPROLOL [Concomitant]
     Indication: MYOCARDIAL STRAIN
     Dosage: 25 MG
     Route: 048
     Dates: start: 201405

REACTIONS (7)
  - Nasal dryness [Not Recovered/Not Resolved]
  - Product quality issue [Unknown]
  - Dry mouth [Not Recovered/Not Resolved]
  - Medication error [Not Recovered/Not Resolved]
  - Nasal disorder [Not Recovered/Not Resolved]
  - Gingival discolouration [Not Recovered/Not Resolved]
  - Burning sensation [Not Recovered/Not Resolved]

NARRATIVE: CASE EVENT DATE: 20140616
